FAERS Safety Report 11335920 (Version 1)
Quarter: 2015Q3

REPORT INFORMATION
  Report Type: Spontaneous
  Country: US (occurrence: None)
  Receive Date: 20150731
  Receipt Date: 20150731
  Transmission Date: 20151125
  Serious: No
  Sender: FDA-Public Use
  Company Number: None

PATIENT
  Age: 37 Year
  Sex: Female
  Weight: 129.6 kg

DRUGS (1)
  1. HYDROMORPHONE [Suspect]
     Active Substance: HYDROMORPHONE
     Indication: PAIN
     Dosage: OTHER
     Route: 048
     Dates: start: 20131122, end: 20131124

REACTIONS (3)
  - Somnolence [None]
  - Confusional state [None]
  - Altered state of consciousness [None]

NARRATIVE: CASE EVENT DATE: 20131122
